FAERS Safety Report 4994096-6 (Version None)
Quarter: 2006Q2

REPORT INFORMATION
  Report Type: 
  Country: None (occurrence: None)
  Receive Date: 20060505
  Receipt Date: 20060427
  Transmission Date: 20061013
  Serious: Yes (Hospitalization)
  Sender: FDA-Public Use
  Company Number: 2006UW07564

PATIENT
  Age: 80 Year
  Sex: Male

DRUGS (6)
  1. CASODEX [Suspect]
     Indication: PROSTATE CANCER
     Route: 048
     Dates: start: 20060101, end: 20060320
  2. LUPRON [Concomitant]
  3. FLOMAX [Concomitant]
  4. CARDURA [Concomitant]
  5. TOPROL-XL [Concomitant]
  6. PREVACID [Concomitant]

REACTIONS (3)
  - BILE DUCT OBSTRUCTION [None]
  - CHOLANGITIS [None]
  - HEPATITIS [None]
